FAERS Safety Report 6654550-8 (Version None)
Quarter: 2010Q1

REPORT INFORMATION
  Report Type: 
  Country: None (occurrence: None)
  Receive Date: 20100326
  Receipt Date: 20100316
  Transmission Date: 20100710
  Serious: Yes (Hospitalization)
  Sender: FDA-Public Use
  Company Number: DE-PFIZER INC-2010033343

PATIENT
  Age: 89 Year
  Sex: Female
  Weight: 71 kg

DRUGS (8)
  1. LYRICA [Interacting]
     Indication: NEUROPATHY PERIPHERAL
     Dosage: 150 MG, 2X/DAY
     Route: 048
  2. IBUPROFEN [Suspect]
     Indication: BACK PAIN
     Dosage: 600 MG, 2X/DAY
     Route: 048
     Dates: end: 20090824
  3. ATACAND [Suspect]
     Indication: HYPERTENSION
     Dosage: 32 MG, 1X/DAY
     Route: 048
     Dates: start: 20080109, end: 20090824
  4. SPIRO COMP. [Suspect]
     Indication: HYPERTENSION
     Dosage: 50 MG SPIRONOLACTON+20 MG FUROSEMID ONCE DAILY
     Route: 048
     Dates: end: 20090824
  5. INSULIN ACTRAPHANE [Concomitant]
     Indication: TYPE 2 DIABETES MELLITUS
     Dosage: 18-12-0 IU TWICE DAILY
     Route: 058
     Dates: start: 20071201
  6. CARMEN [Concomitant]
     Indication: HYPERTENSION
     Dosage: 10 MG, 1X/DAY
     Route: 048
     Dates: start: 20040210, end: 20090824
  7. OMEPRAZOLE [Concomitant]
     Indication: PROPHYLAXIS AGAINST GASTROINTESTINAL ULCER
     Dosage: 20 MG, 1X/DAY
     Route: 048
     Dates: start: 20040901
  8. TRAMADOL [Concomitant]
     Indication: NEUROPATHY PERIPHERAL
     Dosage: 100 MG, 1X/DAY
     Route: 048

REACTIONS (2)
  - HYPERKALAEMIA [None]
  - RENAL IMPAIRMENT [None]
